FAERS Safety Report 21523159 (Version 1)
Quarter: 2022Q4

REPORT INFORMATION
  Report Type: Spontaneous
  Country: US (occurrence: US)
  Receive Date: 20221029
  Receipt Date: 20221029
  Transmission Date: 20230113
  Serious: No
  Sender: FDA-Public Use
  Company Number: US-SA-SAC20221027001626

PATIENT
  Age: 15 Year
  Sex: Male

DRUGS (1)
  1. DUPIXENT [Suspect]
     Active Substance: DUPILUMAB
     Route: 058
     Dates: start: 202112

REACTIONS (5)
  - Influenza [Unknown]
  - Pyrexia [Recovered/Resolved]
  - Cough [Not Recovered/Not Resolved]
  - Pain [Recovered/Resolved]
  - Illness [Unknown]

NARRATIVE: CASE EVENT DATE: 20221001
